FAERS Safety Report 5087840-3 (Version None)
Quarter: 2006Q3

REPORT INFORMATION
  Report Type: 
  Country: None (occurrence: None)
  Receive Date: 20060821
  Receipt Date: 20060821
  Transmission Date: 20061208
  Serious: No
  Sender: FDA-Public Use
  Company Number: None

PATIENT
  Age: 36 Year
  Sex: Male
  Weight: 83 kg

DRUGS (10)
  1. OMNISCAN [Suspect]
     Indication: HEPATIC CIRRHOSIS
     Dosage: 40 CC ONE TIME INJECTION IV
     Route: 042
     Dates: start: 20020910, end: 20020910
  2. OMNISCAN [Suspect]
     Indication: HEPATITIS C
     Dosage: 40 CC ONE TIME INJECTION IV
     Route: 042
     Dates: start: 20020910, end: 20020910
  3. PREDNISONE TAB [Concomitant]
  4. ZANTAC [Concomitant]
  5. SEPTRA [Concomitant]
  6. MYCELEX [Concomitant]
  7. LASIX [Concomitant]
  8. ACTIGALL [Concomitant]
  9. PEPCID [Concomitant]
  10. KEFSOL [Concomitant]

REACTIONS (1)
  - NEPHROGENIC FIBROSING DERMOPATHY [None]
